FAERS Safety Report 18217695 (Version 1)
Quarter: 2020Q3

REPORT INFORMATION
  Report Type: Spontaneous
  Country: US (occurrence: US)
  Receive Date: 20200901
  Receipt Date: 20200901
  Transmission Date: 20201103
  Serious: Yes (Hospitalization)
  Sender: FDA-Public Use
  Company Number: US-UNICHEM PHARMACEUTICALS (USA) INC-UCM202008-000974

PATIENT
  Age: 35 Year
  Sex: Female

DRUGS (2)
  1. LAMOTRIGINE. [Concomitant]
     Active Substance: LAMOTRIGINE
     Indication: PRODUCT USED FOR UNKNOWN INDICATION
     Dosage: UNKNOWN
  2. QUETIAPINE. [Suspect]
     Active Substance: QUETIAPINE
     Indication: OVERDOSE
     Dosage: 36 G

REACTIONS (15)
  - Encephalopathy [Recovered/Resolved]
  - Status epilepticus [Recovered/Resolved]
  - Drug level increased [Recovered/Resolved]
  - Hypoxia [Recovered/Resolved]
  - Mucosal dryness [Recovered/Resolved]
  - Pleural effusion [Recovered/Resolved]
  - Somnolence [Recovered/Resolved]
  - Tachycardia [Recovered/Resolved]
  - Depressed level of consciousness [Recovered/Resolved]
  - Respiratory distress [Recovered/Resolved]
  - Interstitial lung disease [Recovered/Resolved]
  - Blood pressure decreased [Recovered/Resolved]
  - Overdose [Recovered/Resolved]
  - Dysarthria [Recovered/Resolved]
  - Electrocardiogram QT prolonged [Recovered/Resolved]
